FAERS Safety Report 19473989 (Version 1)
Quarter: 2021Q2

REPORT INFORMATION
  Report Type: Other
  Country: US (occurrence: US)
  Receive Date: 20210629
  Receipt Date: 20210629
  Transmission Date: 20210717
  Serious: Yes (Life-Threatening, Hospitalization, Other)
  Sender: FDA-Public Use
  Company Number: US-C B FLEET CO INC-202106-US-002144

PATIENT
  Age: 42 Year
  Sex: Female

DRUGS (1)
  1. ASPIRIN. [Suspect]
     Active Substance: ASPIRIN
     Indication: SUICIDE ATTEMPT
     Dosage: 325MG X 20 TABS
     Route: 048

REACTIONS (6)
  - Hyperchloraemia [Recovered/Resolved]
  - Suicide attempt [Recovered/Resolved]
  - Intentional overdose [Recovered/Resolved]
  - Respiratory alkalosis [Recovered/Resolved]
  - Metabolic acidosis [Recovered/Resolved]
  - Tinnitus [Unknown]
